FAERS Safety Report 25096072 (Version 1)
Quarter: 2025Q1

REPORT INFORMATION
  Report Type: Spontaneous
  Country: US (occurrence: None)
  Receive Date: 20250319
  Receipt Date: 20250319
  Transmission Date: 20250408
  Serious: Yes (Other)
  Sender: FDA-CTU
  Company Number: None

PATIENT
  Age: 73 Year
  Sex: Female

DRUGS (2)
  1. CAPECITABINE [Suspect]
     Active Substance: CAPECITABINE
     Indication: Metastasis
     Dosage: 1500MG BID
  2. CAPECITABINE [Suspect]
     Active Substance: CAPECITABINE
     Indication: Bone cancer

REACTIONS (2)
  - Bone cancer [None]
  - Malignant neoplasm progression [None]
